FAERS Safety Report 6994621-X (Version None)
Quarter: 2010Q3

REPORT INFORMATION
  Report Type: 
  Country: None (occurrence: None)
  Receive Date: 20100916
  Receipt Date: 20100916
  Transmission Date: 20110219
  Serious: Yes (Hospitalization)
  Sender: FDA-Public Use
  Company Number: None

PATIENT
  Age: 32 Year
  Sex: Female

DRUGS (6)
  1. REDNESS SOLUTIONS CLINIQUE [Suspect]
     Indication: ROSACEA
     Dates: start: 20100410, end: 20100410
  2. CLINIQUE REDNESS SOLUTIONS INSTANT RELIEF MINERAL POWDER [Concomitant]
  3. CLINIQUE REDNESS SOLUTIONS DAILY RELIEF CREAM [Concomitant]
  4. CLINIQUE REDNESS SOLUTIONS DAILY PROTECTIVE BASE [Concomitant]
  5. CLINIQUE REDNESS SOLUTIONS URGENT RELIEF CREAM [Concomitant]
  6. CLINIQUE REDNESS SOLUTIONS SOOTHING CLEANSER [Concomitant]

REACTIONS (2)
  - SCAR [None]
  - SWELLING FACE [None]
